FAERS Safety Report 7291463-5 (Version None)
Quarter: 2011Q1

REPORT INFORMATION
  Report Type: 
  Country: None (occurrence: None)
  Receive Date: 20110202
  Receipt Date: 20110124
  Transmission Date: 20110831
  Serious: Yes (Disabling, Other)
  Sender: FDA-Public Use
  Company Number: TRP_07527_2011

PATIENT
  Sex: Male

DRUGS (2)
  1. RIBAVIRIN [Suspect]
     Indication: HEPATITIS C
     Dosage: (DF)
     Dates: start: 20070629
  2. ALBUFERON (ALBUFERON - ALBUMIN-INTERFERON) (NOT SPECIFIED) [Suspect]
     Indication: HEPATITIS C
     Dosage: (DF)
     Dates: start: 20070629

REACTIONS (8)
  - BONE PAIN [None]
  - ACTIVITIES OF DAILY LIVING IMPAIRED [None]
  - LOSS OF EMPLOYMENT [None]
  - ARTHRALGIA [None]
  - FIBROMYALGIA [None]
  - PAIN [None]
  - IMPAIRED WORK ABILITY [None]
  - ANHEDONIA [None]
